FAERS Safety Report 16688061 (Version 1)
Quarter: 2019Q3

REPORT INFORMATION
  Report Type: Spontaneous
  Country: CH (occurrence: CH)
  Receive Date: 20190809
  Receipt Date: 20190809
  Transmission Date: 20191004
  Serious: Yes (Hospitalization, Other)
  Sender: FDA-Public Use
  Company Number: CH-JNJFOC-20190807922

PATIENT
  Age: 77 Year
  Sex: Female

DRUGS (1)
  1. RISPERDAL [Suspect]
     Active Substance: RISPERIDONE
     Indication: PRODUCT USED FOR UNKNOWN INDICATION
     Dosage: ROUTE:048
     Route: 048
     Dates: start: 201904, end: 20190718

REACTIONS (5)
  - Sedation [Unknown]
  - General physical health deterioration [Unknown]
  - Mutism [Unknown]
  - Psychomotor skills impaired [Unknown]
  - Cogwheel rigidity [Unknown]

NARRATIVE: CASE EVENT DATE: 201907
